FAERS Safety Report 4831856-6 (Version None)
Quarter: 2005Q4

REPORT INFORMATION
  Report Type: 
  Country: None (occurrence: None)
  Receive Date: 20051116
  Receipt Date: 20051103
  Transmission Date: 20060501
  Serious: Yes (Hospitalization)
  Sender: FDA-Public Use
  Company Number: US011480

PATIENT
  Age: 68 Year
  Sex: Female
  Weight: 83.0083 kg

DRUGS (5)
  1. PROVIGIL [Suspect]
     Indication: NARCOLEPSY
     Dosage: 200 MG QD ORAL
     Route: 048
     Dates: start: 20030601, end: 20030709
  2. MONOPRIL [Concomitant]
  3. EVISTA [Concomitant]
  4. ZETIA [Concomitant]
  5. DEXADRINE [Concomitant]

REACTIONS (11)
  - CHEILITIS [None]
  - DEHYDRATION [None]
  - ERYTHEMA MULTIFORME [None]
  - MOUTH ULCERATION [None]
  - OEDEMA MOUTH [None]
  - ORAL INTAKE REDUCED [None]
  - PHARYNGOLARYNGEAL PAIN [None]
  - RASH GENERALISED [None]
  - RASH PUSTULAR [None]
  - STEVENS-JOHNSON SYNDROME [None]
  - STOMATITIS [None]
